FAERS Safety Report 15121777 (Version 2)
Quarter: 2018Q4

REPORT INFORMATION
  Report Type: Spontaneous
  Country: US (occurrence: US)
  Receive Date: 20180709
  Receipt Date: 20181008
  Transmission Date: 20190204
  Serious: No
  Sender: FDA-Public Use
  Company Number: US-MYLANLABS-2018M1045833

PATIENT
  Sex: Female

DRUGS (1)
  1. ESTRADIOL. [Suspect]
     Active Substance: ESTRADIOL
     Indication: PRODUCT USED FOR UNKNOWN INDICATION
     Dosage: 0.05 MG, UNK, TWICE WEEKLY
     Route: 062
     Dates: start: 201806

REACTIONS (3)
  - Application site irritation [Unknown]
  - Application site rash [Not Recovered/Not Resolved]
  - Product substitution issue [Unknown]
